FAERS Safety Report 16584308 (Version 1)
Quarter: 2019Q3

REPORT INFORMATION
  Report Type: Spontaneous
  Country: US (occurrence: US)
  Receive Date: 20190717
  Receipt Date: 20190717
  Transmission Date: 20191004
  Serious: Yes (Other)
  Sender: FDA-Public Use
  Company Number: US-ENDO PHARMACEUTICALS INC-2019-104747

PATIENT
  Age: 43 Year
  Sex: Male
  Weight: 104.31 kg

DRUGS (8)
  1. COUMADIN [Concomitant]
     Active Substance: WARFARIN SODIUM
     Indication: PRODUCT USED FOR UNKNOWN INDICATION
     Dosage: 10 MG, DAILY
  2. XIAFLEX [Suspect]
     Active Substance: COLLAGENASE CLOSTRIDIUM HISTOLYTICUM
     Dosage: UNK FIRST CYCLE; FIRST PLAQUE TWO INJECTIONAS
     Route: 026
     Dates: start: 20190204
  3. XIAFLEX [Suspect]
     Active Substance: COLLAGENASE CLOSTRIDIUM HISTOLYTICUM
     Dosage: UNK FOURTH CYCLE; FIRST PLAQUE TWO INJECTIONS
     Route: 026
  4. XIAFLEX [Suspect]
     Active Substance: COLLAGENASE CLOSTRIDIUM HISTOLYTICUM
     Dosage: UNK THIRD CYCLE; FIRST PLAQUE TWO INJECTIONS
     Route: 026
  5. XIAFLEX [Suspect]
     Active Substance: COLLAGENASE CLOSTRIDIUM HISTOLYTICUM
     Dosage: UNK SECOND CYCLE; FIRST PLAQUE TWO INJECTIONS
     Route: 026
  6. XIAFLEX [Suspect]
     Active Substance: COLLAGENASE CLOSTRIDIUM HISTOLYTICUM
     Indication: PEYRONIE^S DISEASE
     Dosage: UNK SECONDCYCLE; SECOND PLAQUE; SECOND INJECTION
     Route: 026
     Dates: start: 20190429
  7. XIAFLEX [Suspect]
     Active Substance: COLLAGENASE CLOSTRIDIUM HISTOLYTICUM
     Dosage: UNK FIRST CYCLE; SECOND PLAQUE TWO INJECTIONS
     Route: 026
  8. XIAFLEX [Suspect]
     Active Substance: COLLAGENASE CLOSTRIDIUM HISTOLYTICUM
     Dosage: UNK SECONDCYCLE; SECOND PLAQUE; FIRST INJECTION
     Route: 026

REACTIONS (2)
  - Gait inability [Recovered/Resolved]
  - Back pain [Recovered/Resolved]

NARRATIVE: CASE EVENT DATE: 20190429
